FAERS Safety Report 23283775 (Version 1)
Quarter: 2023Q4

REPORT INFORMATION
  Report Type: Spontaneous
  Country: US (occurrence: US)
  Receive Date: 20231211
  Receipt Date: 20231211
  Transmission Date: 20240110
  Serious: No
  Sender: FDA-Public Use
  Company Number: US-PFIZER INC-PV202300197864

PATIENT
  Age: 70 Year
  Sex: Male

DRUGS (1)
  1. RIFABUTIN [Suspect]
     Active Substance: RIFABUTIN
     Dosage: UNK

REACTIONS (4)
  - Drug intolerance [Unknown]
  - Rash [Unknown]
  - Headache [Unknown]
  - Feeling abnormal [Unknown]
